FAERS Safety Report 8150741-8 (Version None)
Quarter: 2012Q1

REPORT INFORMATION
  Report Type: 
  Country: None (occurrence: None)
  Receive Date: 20120220
  Receipt Date: 20120209
  Transmission Date: 20120608
  Serious: Yes (Hospitalization)
  Sender: FDA-Public Use
  Company Number: GB-MPIJNJ-2012-00927

PATIENT

DRUGS (6)
  1. CYCLOPHOSPHAMIDE [Suspect]
     Dosage: 1350 MG, UNK
     Dates: start: 20111124, end: 20111215
  2. RITUXIMAB [Suspect]
     Dosage: 678.75 MG, UNK
     Dates: start: 20111124, end: 20111215
  3. VINCRISTINE [Suspect]
     Indication: B-CELL LYMPHOMA
     Dosage: 2 MG, UNK
     Dates: start: 20111124, end: 20111215
  4. PREDNISOLONE [Suspect]
     Indication: B-CELL LYMPHOMA
     Dosage: 100 MG, UNK
     Dates: start: 20111124, end: 20111215
  5. DOXORUBICIN HCL [Suspect]
     Indication: B-CELL LYMPHOMA
     Dosage: 90.5 MG, UNK
     Dates: start: 20111124, end: 20111215
  6. VELCADE [Suspect]
     Indication: B-CELL LYMPHOMA
     Dosage: 2.35 MG, UNK
     Dates: start: 20111215, end: 20111222

REACTIONS (1)
  - INFECTION [None]
